FAERS Safety Report 7451527-X (Version None)
Quarter: 2011Q2

REPORT INFORMATION
  Report Type: 
  Country: None (occurrence: None)
  Receive Date: 20110502
  Receipt Date: 20110425
  Transmission Date: 20111010
  Serious: Yes (Life-Threatening, Hospitalization, Other)
  Sender: FDA-Public Use
  Company Number: PHHY2011US13219

PATIENT
  Sex: Female
  Weight: 88.55 kg

DRUGS (30)
  1. LASIX [Concomitant]
  2. VESICARE [Concomitant]
  3. ALLOPURINOL [Concomitant]
  4. LEVOTHYROXINE SODIUM [Concomitant]
  5. PANTOPRAZOLE SODIUM [Concomitant]
     Dosage: 40 MG, EVERY DAY
     Route: 048
  6. NEUPOGEN [Concomitant]
  7. XYZAL [Concomitant]
  8. SYSTEN [Concomitant]
  9. EXJADE [Suspect]
     Indication: MYELODYSPLASTIC SYNDROME
     Dosage: 500 MG, TID
     Route: 048
     Dates: start: 20110127
  10. POTASSIUM [Concomitant]
  11. AMOXICILLIN AND CLAVULANATE POTASSIUM [Concomitant]
     Dosage: 500 MG, TID
  12. PLAVIX [Concomitant]
  13. CARTIA XT [Concomitant]
  14. CLOPIDOGREL [Concomitant]
  15. AMOXICILLIN [Concomitant]
  16. DILTIAZEM HCL [Concomitant]
     Dosage: 300 MG, EVERY DAY
  17. MOXIFLOXACIN HYDROCHLORIDE [Concomitant]
     Dosage: 0.5 MG, UNK
  18. SYSTANE (PROPYLENE GLYCOL/MACROGOL) [Concomitant]
  19. PRAZOSIN HCL [Concomitant]
  20. TOVIAZ [Concomitant]
  21. ENABLEX [Concomitant]
  22. ARANESP [Concomitant]
  23. POTASSIUM CHLORIDE [Concomitant]
     Dosage: 20 MEQ, BID
     Route: 048
  24. CLOPIDOGREL SULFATE [Concomitant]
     Dosage: 75 MG, EVERY DAY
  25. LEVOTHYROXINE SODIUM [Concomitant]
     Dosage: 125 MG, EVERY DAY
     Route: 048
  26. DARIFENACIN HYDROBROMIDE [Concomitant]
     Dosage: UNK, EVERY DAY
  27. EXJADE [Suspect]
     Indication: IRON OVERLOAD
     Dosage: 500 MG, DAILY
     Route: 048
  28. SYNTHROID [Concomitant]
  29. FUROSEMIDE [Concomitant]
     Dosage: 40 MG, BID
     Route: 048
  30. PROTONIX [Concomitant]
     Dosage: UNK

REACTIONS (10)
  - ANAEMIA [None]
  - THROMBOCYTOPENIA [None]
  - NEUTROPENIA [None]
  - DIARRHOEA [None]
  - HAEMOGLOBIN DECREASED [None]
  - LEUKOPENIA [None]
  - NEUTROPHIL COUNT DECREASED [None]
  - EPISTAXIS [None]
  - WHITE BLOOD CELL COUNT DECREASED [None]
  - NEOPLASM MALIGNANT [None]
